FAERS Safety Report 4286749-2 (Version None)
Quarter: 2004Q1

REPORT INFORMATION
  Report Type: 
  Country: None (occurrence: None)
  Receive Date: 20040206
  Receipt Date: 20040127
  Transmission Date: 20041129
  Serious: Yes (Other)
  Sender: FDA-Public Use
  Company Number: FR-GLAXOSMITHKLINE-B0321132A

PATIENT
  Age: 48 Year
  Sex: Male
  Weight: 49 kg

DRUGS (1)
  1. SALMETEROL [Suspect]
     Indication: CHRONIC OBSTRUCTIVE AIRWAYS DISEASE
     Dosage: 50MCG TWICE PER DAY
     Route: 055
     Dates: start: 20010920, end: 20030206

REACTIONS (1)
  - MYCOBACTERIAL INFECTION [None]
